FAERS Safety Report 14386629 (Version 3)
Quarter: 2020Q2

REPORT INFORMATION
  Report Type: Spontaneous
  Country: US (occurrence: US)
  Receive Date: 20180115
  Receipt Date: 20200412
  Transmission Date: 20200713
  Serious: Yes (Other)
  Sender: FDA-Public Use
  Company Number: US-SA-2017SA095221

PATIENT
  Age: 45 Year
  Sex: Female
  Weight: 68.9 kg

DRUGS (11)
  1. HERCEPTIN [Concomitant]
     Active Substance: TRASTUZUMAB
     Indication: PRODUCT USED FOR UNKNOWN INDICATION
  2. ALOXI [Concomitant]
     Active Substance: PALONOSETRON HYDROCHLORIDE
  3. TAXOTERE [Suspect]
     Active Substance: DOCETAXEL
     Indication: BREAST CANCER FEMALE
     Dosage: 130 MG,Q3W
     Route: 051
     Dates: start: 20140827, end: 20140827
  4. PERJETA [Concomitant]
     Active Substance: PERTUZUMAB
  5. RAMIPRIL. [Concomitant]
     Active Substance: RAMIPRIL
  6. CARBOPLATIN. [Concomitant]
     Active Substance: CARBOPLATIN
     Indication: PRODUCT USED FOR UNKNOWN INDICATION
  7. DEXAMETHASONE. [Concomitant]
     Active Substance: DEXAMETHASONE
  8. NEULASTA [Concomitant]
     Active Substance: PEGFILGRASTIM
  9. TAXOTERE [Suspect]
     Active Substance: DOCETAXEL
     Dosage: 108 MG,Q3W
     Route: 051
     Dates: start: 20141210, end: 20141210
  10. EMEND [Concomitant]
     Active Substance: APREPITANT
  11. DIPHENHYDRAMINE. [Concomitant]
     Active Substance: DIPHENHYDRAMINE

REACTIONS (2)
  - Alopecia [Recovering/Resolving]
  - Psychological trauma [Unknown]

NARRATIVE: CASE EVENT DATE: 201506
